FAERS Safety Report 9543965 (Version 2)
Quarter: 2013Q4

REPORT INFORMATION
  Report Type: Spontaneous
  Country: US (occurrence: US)
  Receive Date: 20130923
  Receipt Date: 20131025
  Transmission Date: 20140711
  Serious: No
  Sender: FDA-Public Use
  Company Number: US-ASTRAZENECA-2013SE67210

PATIENT
  Age: 52 Year
  Sex: Male
  Weight: 86.2 kg

DRUGS (6)
  1. SYMBICORT [Suspect]
     Indication: CHRONIC OBSTRUCTIVE PULMONARY DISEASE
     Dosage: 160 MCG/4.5 MCG TWO PUFFS TWO TIMES A DAY
     Route: 055
     Dates: start: 2011
  2. OMEPRAZOLE [Suspect]
     Route: 048
  3. LISINOPRIL [Suspect]
     Route: 048
  4. HYDROCHLOROT [Suspect]
     Route: 065
  5. IPATROPIUM [Concomitant]
  6. MELOXICAM [Concomitant]
     Indication: RHEUMATOID ARTHRITIS

REACTIONS (3)
  - Throat irritation [Unknown]
  - Off label use [Unknown]
  - Circumstance or information capable of leading to medication error [Unknown]
